FAERS Safety Report 7568357-0 (Version None)
Quarter: 2011Q2

REPORT INFORMATION
  Report Type: 
  Country: None (occurrence: None)
  Receive Date: 20110623
  Receipt Date: 20110614
  Transmission Date: 20111010
  Serious: Yes (Hospitalization, Congenital Anomaly)
  Sender: FDA-Public Use
  Company Number: A0932290B

PATIENT
  Sex: Male

DRUGS (1)
  1. PAXIL [Suspect]
     Route: 064

REACTIONS (5)
  - ADVERSE EVENT [None]
  - CARDIAC DISORDER [None]
  - HEARING IMPAIRED [None]
  - BRONCHOPULMONARY DYSPLASIA [None]
  - DEVELOPMENTAL DELAY [None]
